FAERS Safety Report 19779622 (Version 2)
Quarter: 2021Q3

REPORT INFORMATION
  Report Type: Spontaneous
  Country: JP (occurrence: JP)
  Receive Date: 20210902
  Receipt Date: 20210923
  Transmission Date: 20211014
  Serious: Yes (Hospitalization, Other)
  Sender: FDA-Public Use
  Company Number: JP-LUPIN PHARMACEUTICALS INC.-2021-16272

PATIENT
  Age: 22 Year
  Sex: Male
  Weight: 54.5 kg

DRUGS (4)
  1. VALPROIC ACID. [Suspect]
     Active Substance: VALPROIC ACID
     Indication: EPILEPSY
     Dosage: UNK, QD (600MG TO 800MG) FROM 15 YEARS OLD
     Route: 048
  2. CARBAMAZEPINE. [Suspect]
     Active Substance: CARBAMAZEPINE
     Indication: EPILEPSY
     Dosage: UNK UNK, QD (800MG TO 1200MG)
     Route: 048
  3. LEVETIRACETAM. [Concomitant]
     Active Substance: LEVETIRACETAM
     Indication: EPILEPSY
     Dosage: UNK, QD (500MG TO 1500MG) SINCE THE AGE OF 18
     Route: 048
  4. IMIPRAMINE PAMOATE. [Suspect]
     Active Substance: IMIPRAMINE PAMOATE
     Indication: EPILEPSY
     Dosage: UNK UNK, QD (40MG TO 50MG) FROM 13?19 YEARS
     Route: 048

REACTIONS (1)
  - Hepatic adenoma [Recovered/Resolved]
